FAERS Safety Report 25866359 (Version 1)
Quarter: 2025Q3

REPORT INFORMATION
  Report Type: Spontaneous
  Country: CH (occurrence: CH)
  Receive Date: 20250930
  Receipt Date: 20250930
  Transmission Date: 20251021
  Serious: Yes (Hospitalization)
  Sender: ELI LILLY AND COMPANY
  Company Number: None

PATIENT
  Age: 35 Year
  Sex: Female
  Weight: 75 kg

DRUGS (13)
  1. OLUMIANT [Suspect]
     Active Substance: BARICITINIB
     Indication: Rheumatoid arthritis
     Dosage: 2 MG, DAILY
     Route: 048
     Dates: start: 20210101, end: 20250917
  2. PREDNISONE [Suspect]
     Active Substance: PREDNISONE
     Indication: Rheumatoid arthritis
     Dosage: 5 MG, DAILY
     Route: 065
  3. PANTOZOL [Concomitant]
     Active Substance: PANTOPRAZOLE SODIUM
     Indication: Product used for unknown indication
     Dosage: LONG TERM TREATMENT.
     Route: 048
  4. CHLORPROTHIXENE [Concomitant]
     Active Substance: CHLORPROTHIXENE
     Indication: Product used for unknown indication
     Dosage: LONG TERM TREATMENT.
     Route: 048
  5. PREDNISONE [Concomitant]
     Active Substance: PREDNISONE
     Indication: Product used for unknown indication
     Route: 048
  6. CARBAMAZEPINE [Concomitant]
     Active Substance: CARBAMAZEPINE
     Indication: Product used for unknown indication
     Dosage: LONG TERM TREATMENT.
     Route: 048
  7. FOSAVANCE [Concomitant]
     Active Substance: ALENDRONATE SODIUM\CHOLECALCIFEROL
     Indication: Product used for unknown indication
     Dosage: LONG TERM TREATMENT.
     Route: 048
  8. OZEMPIC [Concomitant]
     Active Substance: SEMAGLUTIDE
     Indication: Product used for unknown indication
     Dosage: LONG TERM TREATMENT.
     Route: 058
  9. OXYCODONE HYDROCHLORIDE [Concomitant]
     Active Substance: OXYCODONE HYDROCHLORIDE
     Indication: Product used for unknown indication
     Route: 048
  10. MIDODRINE HYDROCHLORIDE [Concomitant]
     Active Substance: MIDODRINE HYDROCHLORIDE
     Indication: Product used for unknown indication
     Dosage: LONG TERM TREATMENT.
     Route: 048
  11. ZOMIG [Concomitant]
     Active Substance: ZOLMITRIPTAN
     Indication: Product used for unknown indication
     Route: 048
  12. VENLAFAXIN RET ZENTIVA [Concomitant]
     Indication: Product used for unknown indication
     Dosage: LONG TERM TREATMENT.
     Route: 048
  13. OXYCODON MEPHA RETARD UNO [Concomitant]
     Indication: Product used for unknown indication
     Dosage: LONG TERM TREATMENT.
     Route: 048

REACTIONS (6)
  - Cerebral venous sinus thrombosis [Recovering/Resolving]
  - Syncope [Unknown]
  - Pulmonary embolism [Recovering/Resolving]
  - Hypotension [Unknown]
  - Dizziness [Unknown]
  - Tachycardia [Unknown]

NARRATIVE: CASE EVENT DATE: 20250801
